FAERS Safety Report 7599714-4 (Version None)
Quarter: 2011Q2

REPORT INFORMATION
  Report Type: 
  Country: None (occurrence: None)
  Receive Date: 20110629
  Receipt Date: 20110614
  Transmission Date: 20111010
  Serious: No
  Sender: FDA-Public Use
  Company Number: TCI2011A03539

PATIENT
  Sex: Male

DRUGS (1)
  1. ACTOS [Suspect]
     Indication: BLOOD GLUCOSE ABNORMAL
     Dosage: 15 MG (15 MG, 1 D)
     Route: 048

REACTIONS (1)
  - BLADDER CANCER [None]
